FAERS Safety Report 24985793 (Version 1)
Quarter: 2025Q1

REPORT INFORMATION
  Report Type: Spontaneous
  Country: TR (occurrence: TR)
  Receive Date: 20250219
  Receipt Date: 20250219
  Transmission Date: 20250409
  Serious: Yes (Other)
  Sender: GILEAD
  Company Number: TR-GILEAD-2025-0703917

PATIENT
  Age: 62 Year
  Sex: Female

DRUGS (1)
  1. TRODELVY [Suspect]
     Active Substance: SACITUZUMAB GOVITECAN-HZIY
     Indication: Triple negative breast cancer
     Route: 065
     Dates: start: 20240905

REACTIONS (3)
  - Metastases to lung [Unknown]
  - Metastases to pleura [Unknown]
  - Metastases to bone [Unknown]
